FAERS Safety Report 9062712 (Version 3)
Quarter: 2013Q3

REPORT INFORMATION
  Report Type: Spontaneous
  Country: US (occurrence: US)
  Receive Date: 20130213
  Receipt Date: 20130805
  Transmission Date: 20140515
  Serious: Yes (Other)
  Sender: FDA-Public Use
  Company Number: US-BAYER-2013-017116

PATIENT
  Age: 57 Year
  Sex: Male

DRUGS (4)
  1. AVELOX [Suspect]
     Indication: INFLUENZA LIKE ILLNESS
     Dosage: 400 MG, UNK
     Dates: start: 20110705, end: 20110707
  2. OXYCODONE W/PARACETAMOL [Concomitant]
  3. AMOXICILLIN [Concomitant]
  4. HYDROCODONE [Concomitant]

REACTIONS (16)
  - Blindness [None]
  - Vision blurred [None]
  - Photophobia [None]
  - Uveitis [None]
  - Intraocular pressure increased [None]
  - Ophthalmoplegia [None]
  - Pigment dispersion syndrome [None]
  - Visual acuity reduced [None]
  - Off label use [None]
  - Injury [None]
  - Eye injury [None]
  - Vitreous floaters [None]
  - Emotional distress [None]
  - Anhedonia [None]
  - Quality of life decreased [None]
  - Pain [None]
